FAERS Safety Report 15259987 (Version 2)
Quarter: 2018Q4

REPORT INFORMATION
  Report Type: Spontaneous
  Country: US (occurrence: US)
  Receive Date: 20180809
  Receipt Date: 20181130
  Transmission Date: 20190204
  Serious: No
  Sender: FDA-Public Use
  Company Number: US-PFIZER INC-2018319613

PATIENT
  Age: 52 Year
  Sex: Female

DRUGS (1)
  1. MORPHINE SULFATE. [Suspect]
     Active Substance: MORPHINE SULFATE
     Dosage: UNK

REACTIONS (4)
  - Dysphonia [Unknown]
  - Swelling [Unknown]
  - Drug hypersensitivity [Unknown]
  - Urticaria [Unknown]
